FAERS Safety Report 16171982 (Version 2)
Quarter: 2020Q3

REPORT INFORMATION
  Report Type: Spontaneous
  Country: CA (occurrence: CA)
  Receive Date: 20190409
  Receipt Date: 20200911
  Transmission Date: 20201102
  Serious: Yes (Death)
  Sender: FDA-Public Use
  Company Number: CA-JNJFOC-20190405015

PATIENT
  Age: 73 Year
  Sex: Female

DRUGS (1)
  1. TYLENOL 8 HR ARTHRITIS PAIN [Suspect]
     Active Substance: ACETAMINOPHEN
     Indication: PRODUCT USED FOR UNKNOWN INDICATION
     Route: 048
     Dates: start: 2016

REACTIONS (5)
  - Internal injury [Fatal]
  - Renal failure [Fatal]
  - Liver injury [Fatal]
  - Hepatic failure [Fatal]
  - Accidental overdose [Fatal]

NARRATIVE: CASE EVENT DATE: 2016
